FAERS Safety Report 6515905-5 (Version None)
Quarter: 2009Q4

REPORT INFORMATION
  Report Type: 
  Country: None (occurrence: None)
  Receive Date: 20091223
  Receipt Date: 20091217
  Transmission Date: 20100525
  Serious: Yes (Death, Hospitalization)
  Sender: FDA-Public Use
  Company Number: SE-CELGENEUS-150-21880-09011319

PATIENT
  Sex: Male
  Weight: 80.4 kg

DRUGS (42)
  1. REVLIMID [Suspect]
     Route: 048
     Dates: start: 20081229, end: 20090124
  2. MABCAMPATH [Suspect]
     Route: 051
  3. NEUPOGEN [Concomitant]
     Indication: PROPHYLAXIS
     Route: 058
     Dates: start: 20090105
  4. PREDNISOLONE [Concomitant]
     Route: 048
     Dates: start: 20090126, end: 20090129
  5. DOXYFERM [Concomitant]
     Indication: BRONCHITIS
     Route: 048
     Dates: start: 20090119, end: 20090127
  6. DOXYFERM [Concomitant]
     Route: 048
     Dates: start: 20090123, end: 20090127
  7. VALTREX [Concomitant]
     Indication: PROPHYLAXIS
     Route: 048
     Dates: start: 20081103
  8. LAXOBERAL [Concomitant]
     Dosage: 7.5MG/ML
     Route: 048
     Dates: start: 20090126
  9. ADEX-KALIUMKLORID [Concomitant]
     Indication: DRUG USE FOR UNKNOWN INDICATION
     Dosage: 2-4MMOL/ML
     Route: 065
     Dates: start: 20090126, end: 20090130
  10. BACTRIM DS [Concomitant]
     Indication: DRUG USE FOR UNKNOWN INDICATION
     Route: 048
     Dates: end: 20090124
  11. ZYLORIC [Concomitant]
     Indication: DRUG USE FOR UNKNOWN INDICATION
     Route: 048
     Dates: end: 20090123
  12. OMNIPAQUE 140 [Concomitant]
     Indication: DRUG USE FOR UNKNOWN INDICATION
     Route: 065
     Dates: start: 20090126, end: 20090126
  13. MORFIN [Concomitant]
     Indication: DRUG USE FOR UNKNOWN INDICATION
     Route: 048
  14. ALVEDON [Concomitant]
     Indication: DRUG USE FOR UNKNOWN INDICATION
     Route: 048
  15. ZOPIKLON [Concomitant]
     Indication: DRUG USE FOR UNKNOWN INDICATION
     Route: 048
  16. FUROSEMIDE [Concomitant]
     Indication: DRUG USE FOR UNKNOWN INDICATION
     Dosage: 20-40 MG
     Route: 051
     Dates: start: 20090126, end: 20090218
  17. RINGER ACETAT [Concomitant]
     Indication: DRUG USE FOR UNKNOWN INDICATION
     Route: 051
     Dates: start: 20090126, end: 20090126
  18. GLUCOSE [Concomitant]
     Indication: DRUG USE FOR UNKNOWN INDICATION
     Route: 051
     Dates: start: 20090126, end: 20090126
  19. FILGRASTIM [Concomitant]
     Indication: PROPHYLAXIS
     Route: 058
     Dates: start: 20090105, end: 20090212
  20. DOXYCYCLINE [Concomitant]
     Indication: BRONCHITIS
     Route: 065
     Dates: start: 20090119, end: 20090127
  21. FLUKONAZOL [Concomitant]
     Route: 048
     Dates: start: 20090126, end: 20090206
  22. FLUKONAZOL [Concomitant]
     Route: 048
     Dates: start: 20090209, end: 20090210
  23. NATRIUMTHIOSULFAT [Concomitant]
     Route: 051
     Dates: start: 20090126, end: 20090218
  24. VALACYCLOVIR HCL [Concomitant]
     Indication: PROPHYLAXIS
     Route: 065
     Dates: start: 20081103, end: 20090213
  25. OMEPRAZOLE [Concomitant]
     Indication: PROPHYLAXIS
     Route: 048
     Dates: start: 20090127, end: 20090213
  26. HYDROCORTISONE W/LIDOACINE HYDROCHLORIDE [Concomitant]
     Route: 054
     Dates: start: 20090202, end: 20090216
  27. KABIVEN PI [Concomitant]
     Indication: DRUG USE FOR UNKNOWN INDICATION
     Route: 051
     Dates: start: 20090202, end: 20090210
  28. CEFOTAXIM [Concomitant]
     Indication: INFECTION
     Route: 051
     Dates: start: 20090130, end: 20090206
  29. MEROPENEM [Concomitant]
     Indication: INFECTION
     Route: 051
     Dates: start: 20090206, end: 20090208
  30. MEROPENEM [Concomitant]
     Route: 051
     Dates: start: 20090210, end: 20090212
  31. ANFOTERICINA B [Concomitant]
     Route: 051
     Dates: start: 20090212, end: 20090214
  32. HYDROCORTISONE [Concomitant]
     Indication: DRUG USE FOR UNKNOWN INDICATION
     Route: 051
     Dates: start: 20090213, end: 20090213
  33. MOMETASONE FUROATE [Concomitant]
     Route: 061
     Dates: start: 20090210, end: 20090216
  34. PREDNISONE [Concomitant]
     Indication: INFLAMMATION
     Route: 065
     Dates: start: 20090211, end: 20090214
  35. SULFAMETOXAZOL/TRIMETOPRIM [Concomitant]
     Indication: INFECTION
     Dosage: 16MG/L + 80MG/ML
     Route: 051
     Dates: start: 20090212, end: 20090216
  36. MOXIFLOXACIN HCL [Concomitant]
     Indication: INFECTION
     Route: 055
     Dates: start: 20090211, end: 20090212
  37. IPRATROPIUM [Concomitant]
     Indication: INFECTION
     Dosage: 0.5MG/2.5MG
     Route: 055
     Dates: start: 20090202, end: 20090216
  38. KLEMASTIN [Concomitant]
     Route: 065
     Dates: start: 20090208, end: 20090209
  39. VORICONAZOLE [Concomitant]
     Route: 065
     Dates: start: 20090206, end: 20090212
  40. OSELTAMIVIR [Concomitant]
     Indication: INFLUENZA
  41. LACTULOSE [Concomitant]
     Indication: CONSTIPATION
     Route: 048
     Dates: start: 20090210, end: 20090209
  42. METACLOPRAMIDE [Concomitant]
     Indication: NAUSEA
     Route: 065
     Dates: start: 20090208, end: 20090209

REACTIONS (3)
  - ABDOMINAL PAIN UPPER [None]
  - CHRONIC LYMPHOCYTIC LEUKAEMIA [None]
  - PNEUMONIA [None]
